FAERS Safety Report 13952871 (Version 1)
Quarter: 2017Q3

REPORT INFORMATION
  Report Type: Spontaneous
  Country: US (occurrence: US)
  Receive Date: 20170911
  Receipt Date: 20170911
  Transmission Date: 20171128
  Serious: No
  Sender: FDA-Public Use
  Company Number: US-TEVA-789704USA

PATIENT
  Sex: Female

DRUGS (1)
  1. FENTANYL. [Suspect]
     Active Substance: FENTANYL
     Indication: GASTRINOMA
     Dates: start: 20170714

REACTIONS (3)
  - Pain [Recovered/Resolved]
  - Product quality issue [Unknown]
  - Drug ineffective [Unknown]
